FAERS Safety Report 20038707 (Version 3)
Quarter: 2021Q4

REPORT INFORMATION
  Report Type: Report from Study
  Country: DE (occurrence: DE)
  Receive Date: 20211105
  Receipt Date: 20211207
  Transmission Date: 20220303
  Serious: Yes (Other)
  Sender: FDA-Public Use
  Company Number: DE-NOVARTISPH-NVSC2021DE248681

PATIENT
  Sex: Female
  Weight: 99.5 kg

DRUGS (2)
  1. KISQALI [Suspect]
     Active Substance: RIBOCICLIB
     Indication: Breast cancer metastatic
     Dosage: 600 MG (DAILY DOSE) SCHEMA 21 DAYS INTAKE THAN 7 DAYS PAUSE )
     Route: 048
     Dates: start: 20200706
  2. EXEMESTANE [Suspect]
     Active Substance: EXEMESTANE
     Indication: Breast cancer metastatic
     Dosage: 25 MG, QD
     Route: 048
     Dates: start: 20200629

REACTIONS (2)
  - Lacrimal gland enlargement [Recovering/Resolving]
  - Orbital swelling [Recovered/Resolved]

NARRATIVE: CASE EVENT DATE: 20210428
